FAERS Safety Report 20734530 (Version 1)
Quarter: 2022Q2

REPORT INFORMATION
  Report Type: Spontaneous
  Country: US (occurrence: US)
  Receive Date: 20220421
  Receipt Date: 20220421
  Transmission Date: 20220721
  Serious: Yes (Hospitalization)
  Sender: FDA-Public Use
  Company Number: US-MYLANLABS-2022M1029225

PATIENT
  Age: 58 Year
  Sex: Male

DRUGS (1)
  1. ADALIMUMAB [Suspect]
     Active Substance: ADALIMUMAB
     Indication: Psoriatic arthropathy
     Dosage: UNK
     Route: 065

REACTIONS (4)
  - Myocarditis toxoplasmal [Recovering/Resolving]
  - Eye infection toxoplasmal [Recovering/Resolving]
  - Disseminated toxoplasmosis [Recovering/Resolving]
  - Cardiomyopathy [Recovering/Resolving]
